FAERS Safety Report 18644506 (Version 3)
Quarter: 2021Q2

REPORT INFORMATION
  Report Type: Report from Study
  Country: US (occurrence: US)
  Receive Date: 20201221
  Receipt Date: 20210407
  Transmission Date: 20210717
  Serious: No
  Sender: FDA-Public Use
  Company Number: US-AGIOS-2012US02349

PATIENT

DRUGS (12)
  1. TIBSOVO [Suspect]
     Active Substance: IVOSIDENIB
     Dosage: 250 MILLIGRAM, QD
     Route: 048
     Dates: start: 20210202
  2. CYANOCOBALAMIN. [Concomitant]
     Active Substance: CYANOCOBALAMIN
     Route: 048
  3. LAMOTRIGINE. [Concomitant]
     Active Substance: LAMOTRIGINE
     Dosage: UNK
  4. CHOLECALCIFEROL [Concomitant]
     Active Substance: CHOLECALCIFEROL
     Route: 048
  5. TRAZODONE [Concomitant]
     Active Substance: TRAZODONE HYDROCHLORIDE
     Indication: INSOMNIA
     Route: 048
  6. TIBSOVO [Suspect]
     Active Substance: IVOSIDENIB
     Dosage: 250 MILLIGRAM, 2 TABLETS (500 MG), QD
     Route: 048
     Dates: start: 20210317
  7. CITALOPRAM [Concomitant]
     Active Substance: CITALOPRAM HYDROBROMIDE
     Dosage: 20 MILLIGRAM, QD
     Route: 048
  8. FLUTICASONE. [Concomitant]
     Active Substance: FLUTICASONE
  9. MAGNESIUM [Concomitant]
     Active Substance: MAGNESIUM
  10. TIBSOVO [Suspect]
     Active Substance: IVOSIDENIB
     Indication: OLIGODENDROGLIOMA
     Dosage: 250 MILLIGRAM, 2 TABLETS (500 MG), QD
     Route: 048
     Dates: start: 20200919, end: 20201228
  11. ALPRAZOLAM. [Concomitant]
     Active Substance: ALPRAZOLAM
     Dosage: 0.5 MILLIGRAM
  12. MIDAZOLAM. [Concomitant]
     Active Substance: MIDAZOLAM
     Indication: SEIZURE
     Dosage: 5 MILLIGRAM, QD
     Route: 045

REACTIONS (3)
  - Abdominal distension [Unknown]
  - Off label use [Not Recovered/Not Resolved]
  - Diarrhoea [Not Recovered/Not Resolved]
